FAERS Safety Report 9157060 (Version 1)
Quarter: 2013Q1

REPORT INFORMATION
  Report Type: Spontaneous
  Country: IL (occurrence: None)
  Receive Date: 20130206
  Receipt Date: 20130206
  Transmission Date: 20140127
  Serious: Yes (Other)
  Sender: FDA-Public Use
  Company Number: IMP_06233_2013

PATIENT
  Age: 58 Year
  Sex: Male

DRUGS (5)
  1. OMEPRAZOLE [Suspect]
     Indication: PEPTIC ULCER
     Dosage: DF 1 WEEK 0 DAYS UNTIL NOT CONTINUING
  2. OMEPRAZOLE [Suspect]
     Indication: HELICOBACTER GASTRITIS
     Dosage: DF 1 WEEK 0 DAYS UNTIL NOT CONTINUING
  3. CARBAMAZEPINE [Suspect]
     Dosage: TEMPORARILY DISCONTINUED
  4. AMOXICILLIN [Suspect]
     Dosage: 1 WEEK 0 DAYS UNTIL NOT CONTINUING
  5. CLARITHROMYCIN [Suspect]

REACTIONS (2)
  - Toxicity to various agents [None]
  - Drug interaction [None]
